FAERS Safety Report 21245002 (Version 2)
Quarter: 2022Q3

REPORT INFORMATION
  Report Type: Report from Study
  Country: BE (occurrence: BE)
  Receive Date: 20220823
  Receipt Date: 20220829
  Transmission Date: 20221026
  Serious: Yes (Hospitalization)
  Sender: FDA-Public Use
  Company Number: BE-LEO PHARMA-344913

PATIENT
  Age: 55 Year
  Sex: Male

DRUGS (1)
  1. BRODALUMAB [Suspect]
     Active Substance: BRODALUMAB
     Indication: Psoriasis
     Dosage: 210MG/1.5ML IN WEEK 0,1,2 AND THEN EVERY 2 WEEKS
     Route: 058
     Dates: start: 20220322

REACTIONS (1)
  - Hospitalisation [Unknown]
